FAERS Safety Report 24298800 (Version 1)
Quarter: 2024Q3

REPORT INFORMATION
  Report Type: Spontaneous
  Country: US (occurrence: US)
  Receive Date: 20240909
  Receipt Date: 20240909
  Transmission Date: 20241017
  Serious: Yes (Hospitalization, Other)
  Sender: FRESENIUS KABI
  Company Number: US-FreseniusKabi-FK202413481

PATIENT
  Age: 38 Year
  Sex: Female

DRUGS (4)
  1. ADALIMUMAB [Suspect]
     Active Substance: ADALIMUMAB
     Indication: Hidradenitis
     Dosage: LOADING DOSE?ON DAY 1
  2. ADALIMUMAB [Suspect]
     Active Substance: ADALIMUMAB
     Dosage: LOADING DOSE?ON DAY 15
  3. ADALIMUMAB [Suspect]
     Active Substance: ADALIMUMAB
     Dosage: MAINTENANCE DOSAGE OF 40 MG WEEKLY.
  4. CLINDAMYCIN [Concomitant]
     Active Substance: CLINDAMYCIN
     Indication: Hidradenitis
     Route: 048

REACTIONS (2)
  - Pyoderma gangrenosum [Recovering/Resolving]
  - Paradoxical psoriasis [Recovering/Resolving]
